FAERS Safety Report 4757827-6 (Version None)
Quarter: 2005Q3

REPORT INFORMATION
  Report Type: 
  Country: None (occurrence: None)
  Receive Date: 20050826
  Receipt Date: 20050720
  Transmission Date: 20060218
  Serious: No
  Sender: FDA-Public Use
  Company Number: WAES 0507USA03201

PATIENT
  Age: 72 Year
  Sex: Female

DRUGS (12)
  1. ZETIA [Suspect]
     Indication: BLOOD CHOLESTEROL INCREASED
     Dosage: 10 MG/DAILY/PO
     Route: 048
     Dates: start: 20050709
  2. ALDACTONE [Concomitant]
  3. COUMADIN [Concomitant]
  4. ECOTRIN [Concomitant]
  5. FOLTX [Concomitant]
  6. LIPITOR [Concomitant]
  7. MICARDIS [Concomitant]
  8. OS-CAL [Concomitant]
  9. TOPROL-XL [Concomitant]
  10. THERAPY UNSPECIFIED [Concomitant]
  11. MAGNESIUM OXIDE [Concomitant]
  12. PREDNISONE [Concomitant]

REACTIONS (1)
  - MYALGIA [None]
